FAERS Safety Report 17899709 (Version 2)
Quarter: 2020Q2

REPORT INFORMATION
  Report Type: Report from Study
  Country: IN (occurrence: IN)
  Receive Date: 20200616
  Receipt Date: 20200619
  Transmission Date: 20200714
  Serious: Yes (Other)
  Sender: FDA-Public Use
  Company Number: NVSC2020IN151695

PATIENT
  Age: 1 Year
  Sex: Male
  Weight: 9.6 kg

DRUGS (2)
  1. PREDNISOLONE. [Concomitant]
     Active Substance: PREDNISOLONE
     Indication: PROPHYLAXIS
     Dosage: 1 MG/KG, QD (IN MORNING PRIOR TO GENE THERAPY)
     Route: 048
     Dates: start: 20200528
  2. ZOLGENSMA [Suspect]
     Active Substance: ONASEMNOGENE ABEPARVOVEC-XIOI
     Indication: SPINAL MUSCULAR ATROPHY
     Dosage: UNK UNK, ONCE/SINGLE
     Route: 065
     Dates: start: 20200529

REACTIONS (11)
  - Transaminases increased [Not Recovered/Not Resolved]
  - Vomiting [Not Recovered/Not Resolved]
  - Protein total decreased [Unknown]
  - Hepatic enzyme increased [Not Recovered/Not Resolved]
  - Vomiting [Recovered/Resolved]
  - Pyrexia [Recovered/Resolved]
  - Troponin I increased [Unknown]
  - Blood albumin decreased [Unknown]
  - Thrombocytopenia [Not Recovered/Not Resolved]
  - Decreased appetite [Not Recovered/Not Resolved]
  - Globulins increased [Unknown]

NARRATIVE: CASE EVENT DATE: 20200529
